FAERS Safety Report 9848727 (Version 1)
Quarter: 2014Q1

REPORT INFORMATION
  Report Type: Spontaneous
  Country: US (occurrence: US)
  Receive Date: 20140128
  Receipt Date: 20140128
  Transmission Date: 20141002
  Serious: No
  Sender: FDA-Public Use
  Company Number: US-BAYER-2014-014116

PATIENT
  Sex: Female

DRUGS (6)
  1. ALEVE CAPLET [Suspect]
     Dosage: 1 DF, UNK
     Route: 048
     Dates: start: 1999
  2. BAYER GENUINE ASPIRIN ORIGINAL STRENGTH [Suspect]
     Route: 048
  3. VITAMIN A [Concomitant]
  4. VITAMIN C [Concomitant]
  5. VITAMIN D [Concomitant]
  6. VITAMIN E [Concomitant]

REACTIONS (2)
  - Off label use [None]
  - Incorrect drug administration duration [None]
